FAERS Safety Report 5953269-6 (Version None)
Quarter: 2008Q4

REPORT INFORMATION
  Report Type: 
  Country: None (occurrence: None)
  Receive Date: 20081114
  Receipt Date: 20081107
  Transmission Date: 20090506
  Serious: Yes (Other)
  Sender: FDA-Public Use
  Company Number: PHHY2008GB27140

PATIENT
  Age: 36 Year
  Sex: Female

DRUGS (3)
  1. DICLOFENAC SODIUM [Suspect]
     Dosage: UNK
  2. DIAZEPAM [Interacting]
     Indication: MUSCLE SPASMS
     Dosage: 5 MG, TID
     Dates: start: 20080905, end: 20080915
  3. REBOXETINE [Interacting]
     Indication: DEPRESSION
     Dosage: 4 MG, BID
     Dates: start: 20050101

REACTIONS (4)
  - DRUG INTERACTION [None]
  - FEELING ABNORMAL [None]
  - HALLUCINATIONS, MIXED [None]
  - SUICIDAL IDEATION [None]
